FAERS Safety Report 20738628 (Version 1)
Quarter: 2022Q2

REPORT INFORMATION
  Report Type: Spontaneous
  Country: US (occurrence: None)
  Receive Date: 20220421
  Receipt Date: 20220421
  Transmission Date: 20220721
  Serious: Yes (Hospitalization)
  Sender: FDA-Public Use
  Company Number: None

PATIENT
  Age: 68 Year
  Sex: Male

DRUGS (3)
  1. SUNITINIB [Suspect]
     Active Substance: SUNITINIB
     Indication: Bone neoplasm
     Dosage: FREQUENCY : DAILY;?
     Route: 048
     Dates: start: 202108
  2. SUNITINIB [Suspect]
     Active Substance: SUNITINIB
     Indication: Neoplasm skin
  3. SUNITINIB [Suspect]
     Active Substance: SUNITINIB
     Indication: Soft tissue neoplasm

REACTIONS (1)
  - Diarrhoea [None]

NARRATIVE: CASE EVENT DATE: 20220407
